FAERS Safety Report 4425033-0 (Version None)
Quarter: 2004Q3

REPORT INFORMATION
  Report Type: 
  Country: None (occurrence: None)
  Receive Date: 20040809
  Receipt Date: 20040803
  Transmission Date: 20050211
  Serious: Yes (Hospitalization)
  Sender: FDA-Public Use
  Company Number: HQWYE308621JUL04

PATIENT
  Age: 31 Year
  Sex: Male
  Weight: 102.15 kg

DRUGS (2)
  1. ADVIL [Suspect]
     Indication: MIGRAINE
     Dosage: 1 TABLET 1 TO 2 TIMES A WEEK, ORAL; 3 OR 4 MONTS BEFORE REPORTED
     Route: 048
  2. ALEVE [Suspect]
     Indication: MIGRAINE
     Dosage: 1 TABLET 1 TO 2 TIMES A WEEK, ORAL; 3 OR 4 MONTHS PRIOR TO REPORTED EVENT
     Route: 048

REACTIONS (2)
  - GASTRIC ULCER [None]
  - RECTAL HAEMORRHAGE [None]
